FAERS Safety Report 20656045 (Version 2)
Quarter: 2022Q3

REPORT INFORMATION
  Report Type: Spontaneous
  Country: US (occurrence: US)
  Receive Date: 20220330
  Receipt Date: 20220706
  Transmission Date: 20221027
  Serious: Yes (Other)
  Sender: FDA-Public Use
  Company Number: US-GILEAD-2022-0575344

PATIENT
  Sex: Male
  Weight: 68.027 kg

DRUGS (21)
  1. STRIBILD [Suspect]
     Active Substance: COBICISTAT\ELVITEGRAVIR\EMTRICITABINE\TENOFOVIR DISOPROXIL FUMARATE
     Indication: HIV infection
     Dosage: UNK
     Route: 048
     Dates: start: 201502, end: 2020
  2. BIKTARVY [Concomitant]
     Active Substance: BICTEGRAVIR SODIUM\EMTRICITABINE\TENOFOVIR ALAFENAMIDE FUMARATE
  3. COMBIVIR [Concomitant]
     Active Substance: LAMIVUDINE\ZIDOVUDINE
  4. EPIVIR [Concomitant]
     Active Substance: LAMIVUDINE
  5. RETROVIR [Concomitant]
     Active Substance: ZIDOVUDINE
  6. VIRAMUNE [Concomitant]
     Active Substance: NEVIRAPINE
  7. LUPRON [Concomitant]
     Active Substance: LEUPROLIDE ACETATE
  8. MITOMYCIN [Concomitant]
     Active Substance: MITOMYCIN
  9. CHLORHEXIDINE GLUCONATE [Concomitant]
     Active Substance: CHLORHEXIDINE GLUCONATE
  10. CLOTRIMAZOLE [Concomitant]
     Active Substance: CLOTRIMAZOLE
  11. LEVITRA [Concomitant]
     Active Substance: VARDENAFIL HYDROCHLORIDE
  12. DIPHENHYDRAMINE [Concomitant]
     Active Substance: DIPHENHYDRAMINE
  13. OXYCODONE [Concomitant]
     Active Substance: OXYCODONE
  14. LIDOCAINE [Concomitant]
     Active Substance: LIDOCAINE
  15. ONDANSETRON [Concomitant]
     Active Substance: ONDANSETRON
  16. TYLENOL WITH CODEINE [Concomitant]
     Active Substance: ACETAMINOPHEN\CODEINE PHOSPHATE
  17. LEVOFLOXACIN [Concomitant]
     Active Substance: LEVOFLOXACIN
  18. METRONIDAZOLE [Concomitant]
     Active Substance: METRONIDAZOLE
  19. PROCHLORPERAZINE [Concomitant]
     Active Substance: PROCHLORPERAZINE
  20. HARVONI [Concomitant]
     Active Substance: LEDIPASVIR\SOFOSBUVIR
  21. FLUOROURACIL [Concomitant]
     Active Substance: FLUOROURACIL

REACTIONS (10)
  - Chronic kidney disease [Not Recovered/Not Resolved]
  - Renal impairment [Not Recovered/Not Resolved]
  - Pain [Not Recovered/Not Resolved]
  - Emotional distress [Not Recovered/Not Resolved]
  - Anxiety [Not Recovered/Not Resolved]
  - Anhedonia [Not Recovered/Not Resolved]
  - Pollakiuria [Not Recovered/Not Resolved]
  - Nocturia [Not Recovered/Not Resolved]
  - Sleep disorder [Not Recovered/Not Resolved]
  - Depression [Unknown]

NARRATIVE: CASE EVENT DATE: 20190101
